FAERS Safety Report 10591261 (Version 1)
Quarter: 2014Q4

REPORT INFORMATION
  Report Type: Spontaneous
  Country: IT (occurrence: IT)
  Receive Date: 20141118
  Receipt Date: 20141118
  Transmission Date: 20150529
  Serious: Yes (Hospitalization)
  Sender: FDA-Public Use
  Company Number: IT-TEVA-521963ISR

PATIENT
  Age: 55 Year
  Sex: Male

DRUGS (1)
  1. LANSOPRAZOLE. [Suspect]
     Active Substance: LANSOPRAZOLE
     Indication: PRODUCT USED FOR UNKNOWN INDICATION
     Dates: start: 20141030, end: 20141030

REACTIONS (9)
  - Pruritus [Unknown]
  - Palatal oedema [Unknown]
  - Malaise [Unknown]
  - Presyncope [Unknown]
  - Rash [Unknown]
  - Diarrhoea [Unknown]
  - Erythema [Unknown]
  - Vomiting [Unknown]
  - Vision blurred [Unknown]

NARRATIVE: CASE EVENT DATE: 20141030
